FAERS Safety Report 7150009-2 (Version None)
Quarter: 2010Q4

REPORT INFORMATION
  Report Type: 
  Country: None (occurrence: None)
  Receive Date: 20101210
  Receipt Date: 20101126
  Transmission Date: 20110411
  Serious: Yes (Other)
  Sender: FDA-Public Use
  Company Number: GB-RANBAXY-2010R1-39966

PATIENT
  Sex: Female

DRUGS (3)
  1. FLUCONAZOLE [Suspect]
     Indication: CANDIDIASIS
     Dosage: 150 MG, 1TOTAL
     Route: 065
  2. CLOTRIMAZOLE [Suspect]
     Indication: CANDIDIASIS
     Dosage: 1 DF, QD
     Route: 065
  3. CILEST [Suspect]
     Indication: CONTRACEPTION
     Dosage: UNK
     Route: 065

REACTIONS (1)
  - METRORRHAGIA [None]
